FAERS Safety Report 16643719 (Version 1)
Quarter: 2019Q3

REPORT INFORMATION
  Report Type: Report from Study
  Country: GR (occurrence: GR)
  Receive Date: 20190729
  Receipt Date: 20190729
  Transmission Date: 20191004
  Serious: Yes (Other)
  Sender: FDA-Public Use
  Company Number: GR-BAUSCH-BL-2019-021221

PATIENT
  Age: 73 Year
  Sex: Male

DRUGS (3)
  1. ABIRATERONE ACETATE. [Suspect]
     Active Substance: ABIRATERONE ACETATE
     Indication: PROSTATE CANCER METASTATIC
     Route: 048
  2. LEUPROLIDE [Concomitant]
     Active Substance: LEUPROLIDE
     Indication: PROSTATE CANCER METASTATIC
     Route: 058
  3. PREDNISOLONE. [Suspect]
     Active Substance: PREDNISOLONE
     Indication: PROSTATE CANCER METASTATIC
     Route: 048

REACTIONS (1)
  - Hepatotoxicity [Not Recovered/Not Resolved]

NARRATIVE: CASE EVENT DATE: 20190621
